FAERS Safety Report 9329342 (Version 1)
Quarter: 2013Q2

REPORT INFORMATION
  Report Type: Spontaneous
  Country: US (occurrence: US)
  Receive Date: 20130604
  Receipt Date: 20130604
  Transmission Date: 20140414
  Serious: Yes (Hospitalization)
  Sender: FDA-Public Use
  Company Number: US-SANOFI-AVENTIS-2012SA082394

PATIENT
  Age: 56 Year
  Sex: Male

DRUGS (10)
  1. LANTUS [Suspect]
     Indication: TYPE 2 DIABETES MELLITUS
     Dosage: IN THE EVENING DOSE:45 UNIT(S)
     Route: 058
     Dates: start: 20110405
  2. TACROLIMUS [Suspect]
     Indication: RENAL TRANSPLANT
     Dates: start: 20120714
  3. HUMALOG [Suspect]
     Indication: TYPE 2 DIABETES MELLITUS
     Dosage: PER SLIDING SCALE DOSE:5 UNIT(S)
     Route: 058
     Dates: start: 20110402
  4. ZOCOR [Concomitant]
     Indication: HYPERLIPIDAEMIA
     Dates: start: 20110403
  5. TAMSULOSIN HYDROCHLORIDE [Concomitant]
  6. OMEPRAZOLE [Concomitant]
     Dates: start: 20110405
  7. MYFORTIC [Concomitant]
     Dates: start: 20110423
  8. CELEXA [Concomitant]
     Dates: start: 20110423
  9. CALCIUM CARBONATE [Concomitant]
     Dates: start: 20110405
  10. ASPIRIN [Concomitant]
     Dates: start: 20110405

REACTIONS (1)
  - Hypoglycaemia [Unknown]
